FAERS Safety Report 14373043 (Version 2)
Quarter: 2018Q1

REPORT INFORMATION
  Report Type: Report from Study
  Country: AR (occurrence: AR)
  Receive Date: 20180110
  Receipt Date: 20180116
  Transmission Date: 20180509
  Serious: Yes (Death, Hospitalization)
  Sender: FDA-Public Use
  Company Number: PHHY2018AR002378

PATIENT
  Age: 91 Year
  Sex: Male

DRUGS (1)
  1. ENTRESTO [Suspect]
     Active Substance: SACUBITRIL\VALSARTAN
     Indication: CARDIAC FAILURE CHRONIC
     Dosage: 200 MG, BID (ONE IN MORNING AND ONE IN AFTERNOON)
     Route: 065
     Dates: start: 201608

REACTIONS (14)
  - Pulmonary oedema [Unknown]
  - Head injury [Recovered/Resolved]
  - Hypoaesthesia [Not Recovered/Not Resolved]
  - Cardiac arrest [Fatal]
  - Hypotension [Unknown]
  - Muscular weakness [Unknown]
  - Rib fracture [Recovered/Resolved]
  - Ill-defined disorder [Unknown]
  - Malaise [Unknown]
  - Movement disorder [Unknown]
  - Limb injury [Not Recovered/Not Resolved]
  - General physical health deterioration [Unknown]
  - Fall [Recovered/Resolved]
  - Condition aggravated [Unknown]

NARRATIVE: CASE EVENT DATE: 201701
